FAERS Safety Report 8242917-6 (Version None)
Quarter: 2012Q1

REPORT INFORMATION
  Report Type: 
  Country: None (occurrence: None)
  Receive Date: 20120329
  Receipt Date: 20120329
  Transmission Date: 20120608
  Serious: No
  Sender: FDA-Public Use
  Company Number: None

PATIENT
  Age: 60 Year
  Sex: Female
  Weight: 68.038 kg

DRUGS (2)
  1. ACYCLOVIR [Concomitant]
     Dosage: 1
     Route: 048
  2. ACYCLOVIR [Suspect]
     Route: 048

REACTIONS (7)
  - DRUG EFFECT DECREASED [None]
  - MALAISE [None]
  - IMMUNE SYSTEM DISORDER [None]
  - PARAESTHESIA ORAL [None]
  - OROPHARYNGEAL DISCOMFORT [None]
  - STOMATITIS [None]
  - PRODUCT SUBSTITUTION ISSUE [None]
